FAERS Safety Report 10328890 (Version 1)
Quarter: 2014Q3

REPORT INFORMATION
  Report Type: Spontaneous
  Country: CN (occurrence: CN)
  Receive Date: 20140721
  Receipt Date: 20140721
  Transmission Date: 20150326
  Serious: Yes (Other)
  Sender: FDA-Public Use
  Company Number: CN-BRACCO-001237

PATIENT
  Age: 71 Year
  Sex: Male
  Weight: 71 kg

DRUGS (2)
  1. SODIUM CHLORIDE. [Concomitant]
     Active Substance: SODIUM CHLORIDE
     Dates: start: 20131015
  2. MULTIHANCE [Suspect]
     Active Substance: GADOBENATE DIMEGLUMINE
     Indication: NUCLEAR MAGNETIC RESONANCE IMAGING BRAIN
     Route: 042
     Dates: start: 20131015, end: 20131015

REACTIONS (5)
  - Rash macular [Recovered/Resolved]
  - Pruritus generalised [Unknown]
  - Dysphoria [Unknown]
  - Urticaria [Unknown]
  - Aphasia [Unknown]

NARRATIVE: CASE EVENT DATE: 20131015
